FAERS Safety Report 5234338-5 (Version None)
Quarter: 2007Q1

REPORT INFORMATION
  Report Type: 
  Country: None (occurrence: None)
  Receive Date: 20070209
  Receipt Date: 20070129
  Transmission Date: 20070707
  Serious: Yes (Other)
  Sender: FDA-Public Use
  Company Number: US-ABBOTT-07P-163-0358062-00

PATIENT
  Sex: Male
  Weight: 85.806 kg

DRUGS (4)
  1. DEPAKOTE ER [Suspect]
     Indication: MOOD ALTERED
     Route: 048
     Dates: start: 20060823, end: 20070119
  2. LITHIUM CARBONATE [Concomitant]
     Indication: DRUG USE FOR UNKNOWN INDICATION
     Route: 048
  3. SALBUTAMOL [Concomitant]
     Indication: ASTHMA
     Route: 055
  4. UNKNOWN CONSTIPATION MEDICINE [Concomitant]
     Indication: CONSTIPATION

REACTIONS (1)
  - PRIAPISM [None]
